FAERS Safety Report 12574537 (Version 1)
Quarter: 2016Q3

REPORT INFORMATION
  Report Type: Spontaneous
  Country: GB (occurrence: GB)
  Receive Date: 20160720
  Receipt Date: 20160720
  Transmission Date: 20161109
  Serious: Yes (Other)
  Sender: FDA-Public Use
  Company Number: GB-JNJFOC-20160422711

PATIENT
  Sex: Male

DRUGS (1)
  1. SIMPONI [Suspect]
     Active Substance: GOLIMUMAB
     Indication: INFLAMMATORY BOWEL DISEASE
     Route: 058

REACTIONS (6)
  - Constipation [Unknown]
  - Urinary incontinence [Unknown]
  - Fatigue [Not Recovered/Not Resolved]
  - Diarrhoea haemorrhagic [Not Recovered/Not Resolved]
  - Drug ineffective [Unknown]
  - Abdominal distension [Unknown]
